FAERS Safety Report 23753431 (Version 2)
Quarter: 2024Q4

REPORT INFORMATION
  Report Type: Spontaneous
  Country: GB (occurrence: GB)
  Receive Date: 20240417
  Receipt Date: 20241231
  Transmission Date: 20250115
  Serious: Yes (Death, Other)
  Sender: ELI LILLY AND COMPANY
  Company Number: None

PATIENT
  Age: 65 Year
  Sex: Male
  Weight: 163.29 kg

DRUGS (2)
  1. MOUNJARO [Suspect]
     Active Substance: TIRZEPATIDE
     Indication: Weight control
     Dosage: 2.5 MG, WEEKLY (1/W)
     Route: 065
  2. APIXABAN [Concomitant]
     Active Substance: APIXABAN
     Indication: Atrial fibrillation
     Dosage: 5 MG, BID
     Route: 065

REACTIONS (1)
  - Death [Fatal]

NARRATIVE: CASE EVENT DATE: 20240403
